FAERS Safety Report 7523494-1 (Version None)
Quarter: 2011Q2

REPORT INFORMATION
  Report Type: 
  Country: None (occurrence: None)
  Receive Date: 20110603
  Receipt Date: 20100307
  Transmission Date: 20111010
  Serious: No
  Sender: FDA-Public Use
  Company Number: US-BAYER-201016207NA

PATIENT
  Sex: Female

DRUGS (2)
  1. AVELOX [Suspect]
     Indication: PLEURISY
  2. AVELOX [Suspect]
     Indication: BRONCHITIS
     Dosage: UNK
     Dates: start: 20100302

REACTIONS (2)
  - CANDIDIASIS [None]
  - RASH [None]
